FAERS Safety Report 7310429-X (Version None)
Quarter: 2011Q1

REPORT INFORMATION
  Report Type: 
  Country: None (occurrence: None)
  Receive Date: 20110224
  Receipt Date: 20100920
  Transmission Date: 20110831
  Serious: No
  Sender: FDA-Public Use
  Company Number: US-BRISTOL-MYERS SQUIBB COMPANY-15244361

PATIENT
  Age: 52 Year
  Sex: Female

DRUGS (8)
  1. METFORMIN HCL [Suspect]
     Dosage: DOSE INCREASED
  2. ENALAPRIL MALEATE [Concomitant]
  3. VALTREX [Concomitant]
  4. SUSTIVA [Concomitant]
  5. ALLORIL [Concomitant]
  6. PREVACID [Concomitant]
  7. REYATAZ [Concomitant]
  8. EPZICOM [Concomitant]

REACTIONS (1)
  - DRUG INEFFECTIVE [None]
